FAERS Safety Report 19039443 (Version 2)
Quarter: 2021Q1

REPORT INFORMATION
  Report Type: Spontaneous
  Country: GB (occurrence: GB)
  Receive Date: 20210322
  Receipt Date: 20210331
  Transmission Date: 20210420
  Serious: Yes (Other)
  Sender: FDA-Public Use
  Company Number: GB-ASTELLAS-2021US009965

PATIENT
  Sex: Male

DRUGS (1)
  1. XTANDI [Suspect]
     Active Substance: ENZALUTAMIDE
     Indication: PROSTATE CANCER
     Route: 048
     Dates: end: 20210318

REACTIONS (5)
  - Apraxia [Recovered/Resolved]
  - Condition aggravated [Recovered/Resolved]
  - Hypersomnia [Recovered/Resolved]
  - Muscle twitching [Recovered/Resolved]
  - Irritable bowel syndrome [Recovered/Resolved]
